FAERS Safety Report 10674810 (Version 1)
Quarter: 2014Q4

REPORT INFORMATION
  Report Type: Report from Study
  Country: US (occurrence: US)
  Receive Date: 20141224
  Receipt Date: 20141224
  Transmission Date: 20150529
  Serious: Yes (Death)
  Sender: FDA-Public Use
  Company Number: US-JNJFOC-20141217251

PATIENT
  Sex: Female
  Weight: 109 kg

DRUGS (5)
  1. RESTORIL [Concomitant]
     Active Substance: TEMAZEPAM
  2. POTASSIUM CHLORIDE. [Concomitant]
     Active Substance: POTASSIUM CHLORIDE
  3. LYRICA [Concomitant]
     Active Substance: PREGABALIN
  4. PRENATAL  VITAMINS [Concomitant]
     Active Substance: VITAMINS
  5. IMBRUVICA [Suspect]
     Active Substance: IBRUTINIB
     Indication: CHRONIC LYMPHOCYTIC LEUKAEMIA
     Route: 048
     Dates: start: 201404

REACTIONS (1)
  - Death [Fatal]
